FAERS Safety Report 4432212-5 (Version None)
Quarter: 2004Q3

REPORT INFORMATION
  Report Type: 
  Country: None (occurrence: None)
  Receive Date: 20040820
  Receipt Date: 20040809
  Transmission Date: 20050211
  Serious: Yes (Hospitalization, Other)
  Sender: FDA-Public Use
  Company Number: 200454632

PATIENT
  Age: 76 Year
  Sex: Male

DRUGS (4)
  1. VIAGRA [Suspect]
     Indication: ERECTILE DYSFUNCTION
     Dosage: (25 MG), ORAL
     Route: 048
     Dates: start: 20040729
  2. PROPATHYLNITRATE (PROPATHYLNITRATE) [Concomitant]
  3. GLIBENCLAMIDE (GLIBENCLAMIDE0 [Concomitant]
  4. CAPTOPRIL [Concomitant]

REACTIONS (1)
  - ISCHAEMIC STROKE [None]
